FAERS Safety Report 19730252 (Version 2)
Quarter: 2021Q3

REPORT INFORMATION
  Report Type: Spontaneous
  Country: PT (occurrence: PT)
  Receive Date: 20210821
  Receipt Date: 20210914
  Transmission Date: 20211014
  Serious: Yes (Hospitalization)
  Sender: FDA-Public Use
  Company Number: PT-ACCORD-234393

PATIENT
  Age: 68 Year
  Sex: Male

DRUGS (2)
  1. CINACALCET/CINACALCET HYDROCHLORIDE [Suspect]
     Active Substance: CINACALCET\CINACALCET HYDROCHLORIDE
     Indication: HYPERPARATHYROIDISM
     Dosage: 30MG ONCE A DAY
     Route: 048
  2. ZOLEDRONIC ACID [Interacting]
     Active Substance: ZOLEDRONIC ACID
     Indication: HYPERCALCAEMIA

REACTIONS (2)
  - Hypocalcaemia [Recovered/Resolved]
  - Potentiating drug interaction [Unknown]
